FAERS Safety Report 21033113 (Version 1)
Quarter: 2022Q3

REPORT INFORMATION
  Report Type: Report from Study
  Country: JP (occurrence: JP)
  Receive Date: 20220701
  Receipt Date: 20220701
  Transmission Date: 20221027
  Serious: Yes (Other)
  Sender: FDA-Public Use
  Company Number: JP-ASTELLAS-2022JP009769

PATIENT
  Age: 87 Year
  Sex: Male

DRUGS (3)
  1. ENFORTUMAB VEDOTIN [Suspect]
     Active Substance: ENFORTUMAB VEDOTIN
     Indication: Bladder cancer
     Dosage: 1.0 MG/KG, UNKNOWN FREQ.
     Route: 065
     Dates: start: 20220112, end: 20220119
  2. EPIRUBICIN HYDROCHLORIDE [Concomitant]
     Active Substance: EPIRUBICIN HYDROCHLORIDE
     Indication: Transitional cell carcinoma
     Dosage: UNK UNK, UNKNOWN FREQ.
     Route: 043
     Dates: start: 2019, end: 2021
  3. LINAGLIPTIN [Concomitant]
     Active Substance: LINAGLIPTIN
     Indication: Product used for unknown indication
     Route: 048
     Dates: start: 20220119

REACTIONS (3)
  - Diabetes mellitus [Not Recovered/Not Resolved]
  - Nausea [Recovered/Resolved]
  - Vomiting [Recovered/Resolved]

NARRATIVE: CASE EVENT DATE: 20220119
